FAERS Safety Report 22018033 (Version 2)
Quarter: 2023Q1

REPORT INFORMATION
  Report Type: Spontaneous
  Country: US (occurrence: US)
  Receive Date: 20230221
  Receipt Date: 20230314
  Transmission Date: 20230418
  Serious: No
  Sender: FDA-Public Use
  Company Number: US-Calliditas-2023CAL00126

PATIENT
  Age: 44 Year
  Sex: Male

DRUGS (9)
  1. TARPEYO [Suspect]
     Active Substance: BUDESONIDE
     Indication: IgA nephropathy
     Dosage: 16 MG (4 MG CAPSULES) ONCE DAILY
     Route: 048
     Dates: start: 20220430
  2. PREDNISONE [Concomitant]
     Active Substance: PREDNISONE
  3. CALCIUM ASCORBATE [Concomitant]
     Active Substance: CALCIUM ASCORBATE
  4. CHOLECALCIFEROL [Concomitant]
     Active Substance: CHOLECALCIFEROL
  5. RECLAST [Concomitant]
     Active Substance: ZOLEDRONIC ACID
  6. SOMAVERT [Concomitant]
     Active Substance: PEGVISOMANT
  7. VIMPAT [Concomitant]
     Active Substance: LACOSAMIDE
  8. KEPPRA XR [Concomitant]
     Active Substance: LEVETIRACETAM
     Dosage: TIME INTERVAL:
  9. SYNTHROID [Concomitant]
     Active Substance: LEVOTHYROXINE SODIUM

REACTIONS (6)
  - Back pain [Not Recovered/Not Resolved]
  - Bone loss [Not Recovered/Not Resolved]
  - Weight increased [Not Recovered/Not Resolved]
  - Fluid retention [Not Recovered/Not Resolved]
  - Skin striae [Not Recovered/Not Resolved]
  - Hypertension [Recovering/Resolving]

NARRATIVE: CASE EVENT DATE: 20220101
